FAERS Safety Report 12329713 (Version 1)
Quarter: 2016Q2

REPORT INFORMATION
  Report Type: Spontaneous
  Country: GB (occurrence: GB)
  Receive Date: 20160503
  Receipt Date: 20160503
  Transmission Date: 20160815
  Serious: Yes (Life-Threatening)
  Sender: FDA-Public Use
  Company Number: PHHY2016GB058199

PATIENT
  Age: 9 Year
  Sex: Female
  Weight: 35 kg

DRUGS (1)
  1. PENICILLIN V POTASSIUM. [Suspect]
     Active Substance: PENICILLIN V POTASSIUM
     Indication: TOOTH ABSCESS
     Route: 048
     Dates: start: 20160409, end: 20160411

REACTIONS (4)
  - Flushing [Unknown]
  - Pyrexia [Unknown]
  - Stevens-Johnson syndrome [Unknown]
  - Conjunctivitis [Unknown]

NARRATIVE: CASE EVENT DATE: 20160414
